FAERS Safety Report 10548504 (Version 1)
Quarter: 2014Q4

REPORT INFORMATION
  Report Type: Spontaneous
  Country: US (occurrence: None)
  Receive Date: 20141015
  Receipt Date: 20141015
  Transmission Date: 20150529
  Serious: No
  Sender: FDA-Public Use
  Company Number: 2014US003390

PATIENT
  Age: 26 Year
  Sex: Male

DRUGS (10)
  1. CETIRIZINE HYDROHLORIDE (CETIRIZINE HYDROCHLORIDE) [Concomitant]
  2. DIPHENHYDRAMINE HCL (DIPHENHYDRAMINE HYDROCHLORIDE) [Concomitant]
  3. TYLENOL 8 HOUR (PARACETAMOL) [Concomitant]
  4. ZONISAMIDE (ZONISAMIDE) [Concomitant]
  5. ICLUSIG [Suspect]
     Active Substance: PONATINIB
     Indication: CHRONIC MYELOID LEUKAEMIA
     Route: 048
  6. FUROSEMIDE (FUROSEMIDE) [Concomitant]
     Active Substance: FUROSEMIDE
  7. XANAX [Concomitant]
     Active Substance: ALPRAZOLAM
  8. CLONAZEPAM (CLONAZEPAM) [Concomitant]
  9. KEPPRA [Concomitant]
     Active Substance: LEVETIRACETAM
  10. LEVAQUIN [Concomitant]
     Active Substance: LEVOFLOXACIN

REACTIONS (2)
  - Abnormal faeces [None]
  - Headache [None]
